FAERS Safety Report 11428134 (Version 1)
Quarter: 2015Q3

REPORT INFORMATION
  Report Type: Spontaneous
  Country: US (occurrence: US)
  Receive Date: 20150828
  Receipt Date: 20150828
  Transmission Date: 20151125
  Serious: Yes (Other)
  Sender: FDA-Public Use
  Company Number: US-ROCHE-1268365

PATIENT
  Sex: Male

DRUGS (6)
  1. ACYCLOVIR. [Concomitant]
     Active Substance: ACYCLOVIR
  2. ZOVIRAX [Concomitant]
     Active Substance: ACYCLOVIR
  3. TIZANIDINE. [Concomitant]
     Active Substance: TIZANIDINE
  4. LEXAPRO [Concomitant]
     Active Substance: ESCITALOPRAM OXALATE
  5. PEGASYS [Suspect]
     Active Substance: PEGINTERFERON ALFA-2A
     Indication: CHRONIC HEPATITIS C
     Route: 058
     Dates: start: 20130626, end: 201308
  6. CIALIS [Concomitant]
     Active Substance: TADALAFIL

REACTIONS (1)
  - Drug ineffective [Unknown]
